FAERS Safety Report 10740391 (Version 1)
Quarter: 2015Q1

REPORT INFORMATION
  Report Type: Spontaneous
  Country: US (occurrence: US)
  Receive Date: 20150127
  Receipt Date: 20150127
  Transmission Date: 20150721
  Serious: Yes (Life-Threatening)
  Sender: FDA-Public Use
  Company Number: US-JNJFOC-20150111742

PATIENT
  Age: 1 Day
  Sex: Male
  Weight: 2.03 kg

DRUGS (2)
  1. APAP [Suspect]
     Active Substance: ACETAMINOPHEN
     Indication: PRODUCT USED FOR UNKNOWN INDICATION
     Dosage: MOTHER^S DOSE
     Route: 064
     Dates: start: 20121120
  2. APAP [Suspect]
     Active Substance: ACETAMINOPHEN
     Route: 064

REACTIONS (5)
  - Foetal exposure during pregnancy [Unknown]
  - Toxicity to various agents [Recovering/Resolving]
  - Blood bilirubin increased [Unknown]
  - Premature baby [Unknown]
  - Aspartate aminotransferase increased [Recovered/Resolved]

NARRATIVE: CASE EVENT DATE: 20121120
